FAERS Safety Report 4545842-7 (Version None)
Quarter: 2005Q1

REPORT INFORMATION
  Report Type: 
  Country: None (occurrence: None)
  Receive Date: 20050105
  Receipt Date: 20050105
  Transmission Date: 20050727
  Serious: Yes (Other)
  Sender: FDA-Public Use
  Company Number: None

PATIENT
  Age: 52 Year
  Sex: Female
  Weight: 91.6266 kg

DRUGS (1)
  1. EFFEXOR [Suspect]
     Indication: HOT FLUSH
     Dosage: 37.5MG  ONCE A DAY ORAL
     Route: 048
     Dates: start: 20040501, end: 20041201

REACTIONS (6)
  - ARTHRALGIA [None]
  - DEPRESSION [None]
  - DRUG WITHDRAWAL SYNDROME [None]
  - NAUSEA [None]
  - NERVOUS SYSTEM DISORDER [None]
  - TREMOR [None]
